FAERS Safety Report 23626576 (Version 1)
Quarter: 2024Q1

REPORT INFORMATION
  Report Type: Spontaneous
  Country: FR (occurrence: FR)
  Receive Date: 20240313
  Receipt Date: 20240313
  Transmission Date: 20240410
  Serious: Yes (Death, Hospitalization, Other)
  Sender: FDA-Public Use
  Company Number: FR-CELLTRION INC.-2024FR005704

PATIENT

DRUGS (14)
  1. RITUXIMAB [Suspect]
     Active Substance: RITUXIMAB
     Indication: B-cell lymphoma
     Dosage: 700 MG, 1 TOTAL
     Route: 042
     Dates: start: 20200917, end: 20200917
  2. PREDNISOLONE SODIUM METAZOATE [Suspect]
     Active Substance: PREDNISOLONE SODIUM METAZOATE
     Indication: Lung disorder
     Dosage: 50 MG, EVERY 1 DAY
     Route: 048
     Dates: start: 20201004, end: 20201007
  3. LOVENOX [Suspect]
     Active Substance: ENOXAPARIN SODIUM
     Indication: Thrombosis prophylaxis
     Dosage: 1 DF, EVERY 1 DAY
     Route: 058
  4. CYTARABINE [Suspect]
     Active Substance: CYTARABINE
     Indication: B-cell lymphoma
     Dosage: 1910 MG, 1 TOTAL
     Route: 042
     Dates: start: 20200918, end: 20200918
  5. CARBOPLATIN [Suspect]
     Active Substance: CARBOPLATIN
     Indication: B-cell lymphoma
     Dosage: 260 MG, 1 TOTAL
     Route: 042
     Dates: start: 20200917, end: 20200917
  6. VALACYCLOVIR HYDROCHLORIDE [Suspect]
     Active Substance: VALACYCLOVIR HYDROCHLORIDE
     Indication: Opportunistic infection prophylaxis
     Dosage: 1000 MG, EVERY 1 DAY
     Route: 048
  7. ALLOPURINOL [Suspect]
     Active Substance: ALLOPURINOL
     Indication: Prophylaxis
     Dosage: 300 MG, EVERY 1 DAY
     Route: 048
     Dates: start: 20201008
  8. ALFUZOSIN [Suspect]
     Active Substance: ALFUZOSIN
     Indication: Prophylaxis
     Dosage: 1 DF, EVERY 1 DAY
     Route: 048
     Dates: start: 20200921
  9. FUROSEMIDE [Suspect]
     Active Substance: FUROSEMIDE
     Indication: Polyuria
     Dosage: 40 MG, EVERY 1 DAY
     Route: 048
     Dates: start: 20200914, end: 20201007
  10. NEBIVOLOL [Suspect]
     Active Substance: NEBIVOLOL
     Indication: Myocardial ischaemia
     Dosage: 2.5 MG, EVEYR 1 DAY
     Route: 048
  11. KARDEGIC [Suspect]
     Active Substance: ASPIRIN DL-LYSINE
     Indication: Cardiovascular event prophylaxis
     Dosage: 1 DF, EVERY 1 DAY
     Route: 048
     Dates: start: 20200917
  12. ATORVASTATIN [Suspect]
     Active Substance: ATORVASTATIN
     Indication: Dyslipidaemia
     Dosage: 80 MG, EVERY 1 DAY
     Route: 048
  13. BACTRIM [Suspect]
     Active Substance: SULFAMETHOXAZOLE\TRIMETHOPRIM
     Indication: Pneumocystis jirovecii pneumonia
     Dosage: 6 DF, EVERY 1 DAY
     Route: 048
     Dates: start: 20201005
  14. DEXAMETHASONE [Concomitant]
     Active Substance: DEXAMETHASONE
     Indication: B-cell lymphoma
     Dosage: 40 MG, EVERY 1 DAY
     Route: 048
     Dates: start: 20200917, end: 20200920

REACTIONS (2)
  - Neuropathy peripheral [Fatal]
  - Underdose [Unknown]

NARRATIVE: CASE EVENT DATE: 20201007
